FAERS Safety Report 24728026 (Version 4)
Quarter: 2025Q3

REPORT INFORMATION
  Report Type: Spontaneous
  Country: US (occurrence: US)
  Receive Date: 20241212
  Receipt Date: 20250810
  Transmission Date: 20251021
  Serious: No
  Sender: ALEXION PHARMACEUTICALS
  Company Number: US-AstraZeneca-CH-00766342AP

PATIENT
  Sex: Female

DRUGS (1)
  1. BREZTRI [Suspect]
     Active Substance: BUDESONIDE\FORMOTEROL\GLYCOPYRROLATE
     Dosage: 2 PUFFS, BID
     Route: 065
     Dates: start: 202411

REACTIONS (5)
  - Wrong technique in device usage process [Unknown]
  - Device defective [Unknown]
  - Product dose omission in error [Unknown]
  - Product administration error [Unknown]
  - Dyspnoea [Unknown]
